FAERS Safety Report 9062996 (Version 1)
Quarter: 2013Q1

REPORT INFORMATION
  Report Type: Report from Study
  Country: US (occurrence: US)
  Receive Date: 20130131
  Receipt Date: 20130131
  Transmission Date: 20140127
  Serious: No
  Sender: FDA-Public Use
  Company Number: US-ABBOTT-12P-163-1008431-00

PATIENT
  Age: 58 Year
  Sex: Female

DRUGS (3)
  1. HUMIRA [Suspect]
     Indication: PSORIASIS
     Dates: start: 20120504, end: 20121019
  2. LOSARTAN [Concomitant]
     Indication: HYPERTENSION
     Dosage: DAILY
  3. UNKNOWN MEDICATION [Concomitant]
     Indication: DIURETIC THERAPY
     Dosage: DAILY

REACTIONS (4)
  - Dizziness [Not Recovered/Not Resolved]
  - Dyslexia [Not Recovered/Not Resolved]
  - Amnesia [Not Recovered/Not Resolved]
  - Disorientation [Not Recovered/Not Resolved]
